FAERS Safety Report 5271681-8 (Version None)
Quarter: 2007Q1

REPORT INFORMATION
  Report Type: 
  Country: None (occurrence: None)
  Receive Date: 20070321
  Receipt Date: 20070314
  Transmission Date: 20070707
  Serious: Yes (Other)
  Sender: FDA-Public Use
  Company Number: US-PFIZER INC-2007019640

PATIENT
  Sex: Male

DRUGS (2)
  1. GEODON [Suspect]
  2. IMMUNOSUPPRESSIVE AGENTS [Concomitant]

REACTIONS (6)
  - CATATONIA [None]
  - FATIGUE [None]
  - LACRIMATION INCREASED [None]
  - MUSCLE SPASMS [None]
  - STOMACH DISCOMFORT [None]
  - TREMOR [None]
